FAERS Safety Report 25945785 (Version 1)
Quarter: 2025Q4

REPORT INFORMATION
  Report Type: Report from Study
  Country: US (occurrence: US)
  Receive Date: 20251021
  Receipt Date: 20251021
  Transmission Date: 20260118
  Serious: Yes (Other)
  Sender: TG THERAPEUTICS
  Company Number: US-TG THERAPEUTICS INC.-TGT006286

PATIENT

DRUGS (2)
  1. UBLITUXIMAB [Suspect]
     Active Substance: UBLITUXIMAB
     Indication: Multiple sclerosis
     Dosage: 150 MILLIGRAM
     Route: 042
     Dates: start: 20230919, end: 20230919
  2. UBLITUXIMAB [Suspect]
     Active Substance: UBLITUXIMAB
     Dosage: 450 MILLIGRAM
     Route: 042
     Dates: start: 20250326, end: 20250326

REACTIONS (10)
  - Optic neuritis [Unknown]
  - Gait inability [Unknown]
  - Dysstasia [Unknown]
  - Visual impairment [Unknown]
  - Photophobia [Unknown]
  - Sleep disorder [Unknown]
  - Nightmare [Unknown]
  - Hypoaesthesia [Unknown]
  - Ear disorder [Unknown]
  - Vitreous floaters [Unknown]
